FAERS Safety Report 9414287 (Version 1)
Quarter: 2013Q3

REPORT INFORMATION
  Report Type: Spontaneous
  Country: US (occurrence: US)
  Receive Date: 20130723
  Receipt Date: 20130723
  Transmission Date: 20140515
  Serious: No
  Sender: FDA-Public Use
  Company Number: US-009507513-1307USA011401

PATIENT
  Age: 60 Year
  Sex: Female

DRUGS (7)
  1. PEGINTRON [Suspect]
     Indication: HEPATITIS C
     Dosage: 120 MICROGRAM, QW
     Route: 058
     Dates: start: 20130410, end: 20130718
  2. REBETOL [Suspect]
  3. VICTRELIS [Suspect]
     Indication: HEPATITIS C
     Dosage: 800 MG, Q8H
     Route: 048
     Dates: start: 20130503, end: 20130718
  4. PROCRIT [Concomitant]
  5. OMEPRAZOLE [Concomitant]
  6. APAP [Concomitant]
  7. FLUOXETINE [Concomitant]

REACTIONS (1)
  - Retinal haemorrhage [Unknown]
